FAERS Safety Report 16085426 (Version 1)
Quarter: 2019Q2

REPORT INFORMATION
  Report Type: Spontaneous
  Country: US (occurrence: US)
  Receive Date: 20190318
  Receipt Date: 20190318
  Transmission Date: 20190711
  Serious: Yes (Other)
  Sender: FDA-Public Use
  Company Number: None

PATIENT
  Age: 44 Year
  Sex: Male
  Weight: 145.1 kg

DRUGS (1)
  1. HURRICAINE TOPICAL ANESTHETIC [Suspect]
     Active Substance: BENZOCAINE
     Indication: ECHOCARDIOGRAM

REACTIONS (1)
  - Methaemoglobinaemia [None]

NARRATIVE: CASE EVENT DATE: 20181109
